FAERS Safety Report 7739604-7 (Version None)
Quarter: 2011Q3

REPORT INFORMATION
  Report Type: 
  Country: None (occurrence: None)
  Receive Date: 20110909
  Receipt Date: 20110905
  Transmission Date: 20111222
  Serious: Yes (Death)
  Sender: FDA-Public Use
  Company Number: IT-PFIZER INC-2011207538

PATIENT
  Age: 65 Year
  Sex: Female

DRUGS (7)
  1. DURAGESIC-100 [Concomitant]
  2. CLOZAPINE [Concomitant]
     Dosage: 25 MG, UNK
  3. SUTENT [Suspect]
     Indication: RENAL CELL CARCINOMA
     Dosage: 50 MG, 1X/DAY
     Route: 048
     Dates: start: 20110819, end: 20110831
  4. PREDNISONE [Concomitant]
     Dosage: 12.5 MG, UNK
  5. DANKA [Concomitant]
     Dosage: 20 DROPS
  6. DOMPERIDONE [Concomitant]
     Dosage: 40 MG, UNK
     Route: 048
  7. TORADOL [Concomitant]
     Dosage: 20 MG, UNK

REACTIONS (1)
  - CIRCULATORY COLLAPSE [None]
